FAERS Safety Report 14767833 (Version 1)
Quarter: 2018Q2

REPORT INFORMATION
  Report Type: Spontaneous
  Country: US (occurrence: US)
  Receive Date: 20180410
  Receipt Date: 20180410
  Transmission Date: 20180711
  Serious: No
  Sender: FDA-Public Use
  Company Number: None

PATIENT
  Age: 70 Year
  Sex: Female
  Weight: 82.1 kg

DRUGS (8)
  1. ASPIRIN. [Concomitant]
     Active Substance: ASPIRIN
  2. LOSARTAN. [Concomitant]
     Active Substance: LOSARTAN
  3. NEXIUM [Concomitant]
     Active Substance: ESOMEPRAZOLE MAGNESIUM
  4. THYROXINE [Concomitant]
     Active Substance: LEVOTHYROXINE
  5. CYCLOBENZAPRINE 10MG GEN. EQ. FLEXERIL [Suspect]
     Active Substance: CYCLOBENZAPRINE
     Indication: MUSCLE SPASMS
     Dosage: ?          QUANTITY:10 MG MILLIGRAM(S);?
     Route: 048
     Dates: start: 20180314, end: 20180316
  6. INHALER [Concomitant]
     Active Substance: UNSPECIFIED INGREDIENT
  7. CITRACAL [Concomitant]
     Active Substance: CALCIUM CITRATE
  8. LOVASTATIN. [Concomitant]
     Active Substance: LOVASTATIN

REACTIONS (2)
  - Muscle tightness [None]
  - Pollakiuria [None]

NARRATIVE: CASE EVENT DATE: 20180314
